FAERS Safety Report 14311733 (Version 1)
Quarter: 2017Q4

REPORT INFORMATION
  Report Type: Spontaneous
  Country: FR (occurrence: FR)
  Receive Date: 20171221
  Receipt Date: 20171221
  Transmission Date: 20180321
  Serious: Yes (Other)
  Sender: FDA-Public Use
  Company Number: FR-MERCK KGAA-2037510

PATIENT
  Age: 53 Year
  Sex: Female

DRUGS (6)
  1. UVEDOSE [Concomitant]
     Active Substance: CHOLECALCIFEROL
  2. PIROXICAM. [Concomitant]
     Active Substance: PIROXICAM
  3. PANTOPRAZOLE [Concomitant]
     Active Substance: PANTOPRAZOLE
  4. NOVOTHYROX [Suspect]
     Active Substance: LEVOTHYROXINE SODIUM
     Indication: POST PROCEDURAL HYPOTHYROIDISM
     Dates: start: 201704
  5. DOLIPRANE [Concomitant]
     Active Substance: ACETAMINOPHEN
  6. STERDEX(STER-DEX) [Concomitant]

REACTIONS (14)
  - Myalgia [None]
  - Palpitations [None]
  - Pain in extremity [None]
  - Vision blurred [None]
  - Insomnia [None]
  - Hot flush [None]
  - Loss of personal independence in daily activities [None]
  - Trismus [None]
  - Musculoskeletal stiffness [None]
  - Vertigo [None]
  - Fatigue [None]
  - Gait disturbance [None]
  - Amnesia [None]
  - Nausea [None]

NARRATIVE: CASE EVENT DATE: 2017
